FAERS Safety Report 9706536 (Version 1)
Quarter: 2013Q4

REPORT INFORMATION
  Report Type: Spontaneous
  Country: BR (occurrence: BR)
  Receive Date: 20131125
  Receipt Date: 20131125
  Transmission Date: 20140711
  Serious: Yes (Hospitalization)
  Sender: FDA-Public Use
  Company Number: BR-ROCHE-1303889

PATIENT
  Sex: Male
  Weight: 67 kg

DRUGS (6)
  1. RIVOTRIL [Suspect]
     Indication: ANXIETY
     Route: 048
     Dates: start: 201309
  2. RIVOTRIL [Suspect]
     Indication: DEPRESSION
  3. DIAZEPAM [Suspect]
     Indication: ANXIETY
     Route: 065
  4. DIAZEPAM [Suspect]
     Indication: DEPRESSION
  5. OXCARBAZEPINE [Concomitant]
     Indication: ANXIETY
     Route: 065
     Dates: start: 2012
  6. DALMADORM [Concomitant]
     Indication: ANXIETY
     Route: 065
     Dates: start: 2011

REACTIONS (7)
  - Prostatic disorder [Unknown]
  - Drug ineffective [Unknown]
  - Erectile dysfunction [Not Recovered/Not Resolved]
  - Depressed mood [Not Recovered/Not Resolved]
  - Malaise [Not Recovered/Not Resolved]
  - Anxiety [Unknown]
  - Depression [Unknown]
